FAERS Safety Report 7610306-0 (Version None)
Quarter: 2011Q3

REPORT INFORMATION
  Report Type: 
  Country: None (occurrence: None)
  Receive Date: 20110713
  Receipt Date: 20110713
  Transmission Date: 20111222
  Serious: No
  Sender: FDA-Public Use
  Company Number: None

PATIENT
  Age: 72 Year
  Sex: Female
  Weight: 54.4316 kg

DRUGS (2)
  1. TRAVATAN Z [Suspect]
     Indication: GLAUCOMA
     Dosage: 1 DROP EACH EYE 1 AT NIGHT DROPS
  2. LATANOPROST [Suspect]
     Indication: GLAUCOMA
     Dosage: 1 DROP EACH EYE 1 AT NIGHT DROPS

REACTIONS (10)
  - CHEST PAIN [None]
  - PAIN [None]
  - MYALGIA [None]
  - GASTROINTESTINAL DISORDER [None]
  - RASH [None]
  - HEADACHE [None]
  - BACK PAIN [None]
  - DEPRESSION [None]
  - CONDITION AGGRAVATED [None]
  - ARTHRALGIA [None]
